FAERS Safety Report 7378608-3 (Version None)
Quarter: 2011Q1

REPORT INFORMATION
  Report Type: 
  Country: None (occurrence: None)
  Receive Date: 20110317
  Receipt Date: 20110308
  Transmission Date: 20110831
  Serious: Yes (Hospitalization)
  Sender: FDA-Public Use
  Company Number: 026147

PATIENT
  Sex: Female
  Weight: 70 kg

DRUGS (1)
  1. CIMZIA [Suspect]
     Indication: RHEUMATOID ARTHRITIS
     Dosage: 200 MG, TWO INJECTIONS (SINGLE DOSE), SUBCUTANEOUS
     Route: 058
     Dates: start: 20110123

REACTIONS (5)
  - RHEUMATOID ARTHRITIS [None]
  - HYPOKALAEMIA [None]
  - INFLAMMATION [None]
  - ECZEMA [None]
  - DIARRHOEA [None]
